FAERS Safety Report 12422525 (Version 1)
Quarter: 2016Q2

REPORT INFORMATION
  Report Type: Spontaneous
  Country: GB (occurrence: GB)
  Receive Date: 20160601
  Receipt Date: 20160601
  Transmission Date: 20160815
  Serious: Yes (Other)
  Sender: FDA-Public Use
  Company Number: GB-SUN PHARMACEUTICAL INDUSTRIES LTD-2016RR-117529

PATIENT
  Age: 65 Year
  Sex: Male
  Weight: 94 kg

DRUGS (2)
  1. NAPROXEN. [Suspect]
     Active Substance: NAPROXEN
     Indication: PROPHYLAXIS
     Route: 065
     Dates: start: 20160509
  2. OMEPRAZOLE. [Concomitant]
     Active Substance: OMEPRAZOLE
     Indication: PRODUCT USED FOR UNKNOWN INDICATION
     Dosage: WHEN TAKING NON-STEROIDAL ANTI-INFLAMMATORY DRUG (NSAID)
     Route: 065
     Dates: start: 20160330, end: 20160427

REACTIONS (2)
  - Purpura [Unknown]
  - Immune thrombocytopenic purpura [Recovering/Resolving]

NARRATIVE: CASE EVENT DATE: 20160509
